FAERS Safety Report 6056261-9 (Version None)
Quarter: 2009Q1

REPORT INFORMATION
  Report Type: 
  Country: None (occurrence: None)
  Receive Date: 20090126
  Receipt Date: 20090126
  Transmission Date: 20090719
  Serious: No
  Sender: FDA-Public Use
  Company Number: None

PATIENT
  Age: 56 Year
  Sex: Male

DRUGS (1)
  1. VARENICLINE [Suspect]
     Indication: SCHIZOAFFECTIVE DISORDER
     Dates: start: 20070831, end: 20070908

REACTIONS (6)
  - AGITATION [None]
  - DRUG WITHDRAWAL SYNDROME [None]
  - INSOMNIA [None]
  - NIGHTMARE [None]
  - RESTLESSNESS [None]
  - SLEEP DISORDER [None]
